FAERS Safety Report 5162453-3 (Version None)
Quarter: 2006Q4

REPORT INFORMATION
  Report Type: 
  Country: None (occurrence: None)
  Receive Date: 20061129
  Receipt Date: 20061129
  Transmission Date: 20070319
  Serious: Yes (Hospitalization, Disabling)
  Sender: FDA-Public Use
  Company Number: None

PATIENT
  Age: 85 Year
  Sex: Male
  Weight: 90 kg

DRUGS (1)
  1. VISIPAQUE [Suspect]
     Indication: ANGIOGRAM
     Dosage: 72 ML X 1 IV
     Route: 042
     Dates: start: 20060908

REACTIONS (7)
  - ATRIAL FIBRILLATION [None]
  - BLOOD PRESSURE DECREASED [None]
  - BRADYCARDIA [None]
  - COMA [None]
  - ELECTROMECHANICAL DISSOCIATION [None]
  - PROCEDURAL COMPLICATION [None]
  - VENTRICULAR FIBRILLATION [None]
